FAERS Safety Report 8578805-5 (Version None)
Quarter: 2012Q3

REPORT INFORMATION
  Report Type: 
  Country: None (occurrence: None)
  Receive Date: 20120808
  Receipt Date: 20120731
  Transmission Date: 20120928
  Serious: Yes (Hospitalization)
  Sender: FDA-Public Use
  Company Number: US-VERTEX PHARMACEUTICALS INC.-AE-2012-008904

PATIENT
  Age: 57 Year
  Sex: Male

DRUGS (16)
  1. NYSTATIN [Concomitant]
  2. RIBAVIRIN [Concomitant]
     Indication: HEPATITIS C
     Dates: start: 20120412
  3. LACTOBACILLUS [Concomitant]
  4. PREDNISONE [Concomitant]
  5. LASIX [Concomitant]
  6. NEXIUM [Concomitant]
  7. CLARITIN [Concomitant]
  8. BENEZAPRIL [Concomitant]
  9. LANTUS [Concomitant]
  10. PEGASYS [Concomitant]
     Indication: HEPATITIS C
     Route: 058
     Dates: start: 20120412
  11. LEVOXYL [Concomitant]
  12. HYDROXYZINE [Concomitant]
  13. METFORMIN HYDROCHLORIDE [Concomitant]
  14. INCIVEK [Suspect]
     Indication: HEPATITIS C
     Route: 048
     Dates: start: 20120412, end: 20120612
  15. SPIRONOLACTONE [Concomitant]
  16. CEFAZOLIN [Concomitant]

REACTIONS (7)
  - RASH GENERALISED [None]
  - BLOOD GLUCOSE INCREASED [None]
  - PYREXIA [None]
  - NAUSEA [None]
  - CHILLS [None]
  - VOMITING [None]
  - DRUG ERUPTION [None]
